FAERS Safety Report 5271616-8 (Version None)
Quarter: 2007Q1

REPORT INFORMATION
  Report Type: 
  Country: None (occurrence: None)
  Receive Date: 20061214
  Receipt Date: 20060830
  Transmission Date: 20070707
  Serious: Yes (Other)
  Sender: FDA-Public Use
  Company Number: 2006107814

PATIENT
  Age: 58 Year
  Sex: Female
  Weight: 64.8644 kg

DRUGS (1)
  1. BEXTRA [Suspect]

REACTIONS (3)
  - CHEST PAIN [None]
  - PALPITATIONS [None]
  - THROMBOSIS [None]
